FAERS Safety Report 9729042 (Version 2)
Quarter: 2013Q4

REPORT INFORMATION
  Report Type: Report from Study
  Country: CA (occurrence: CA)
  Receive Date: 20131204
  Receipt Date: 20131204
  Transmission Date: 20140711
  Serious: No
  Sender: FDA-Public Use
  Company Number: CA-SA-CAMP-1002499

PATIENT
  Age: 46 Year
  Sex: Female
  Weight: 71.16 kg

DRUGS (5)
  1. ALEMTUZUMAB [Suspect]
     Indication: MULTIPLE SCLEROSIS
     Dosage: 12 MG, QD
     Route: 042
     Dates: start: 20111031, end: 20111104
  2. REBIF [Concomitant]
     Indication: MULTIPLE SCLEROSIS
     Dosage: 44 MCG, 3X/W, UPTITRATED FROM 8.8MCG TO 44MCG
     Route: 059
     Dates: start: 20090901, end: 20110912
  3. METHYLPREDNISOLONE [Concomitant]
     Indication: MULTIPLE SCLEROSIS
     Dosage: 1 G, QD
     Route: 042
     Dates: start: 20090901, end: 20090903
  4. METHYLPREDNISOLONE [Concomitant]
     Indication: MULTIPLE SCLEROSIS
     Dosage: 1 G, QD
     Route: 042
     Dates: start: 20100824, end: 20100826
  5. METHYLPREDNISOLONE [Concomitant]
     Indication: MULTIPLE SCLEROSIS
     Dosage: 1 G, QD
     Route: 042
     Dates: start: 20111031, end: 20111102

REACTIONS (1)
  - Malignant melanoma in situ [Recovered/Resolved]
